FAERS Safety Report 9169887 (Version 1)
Quarter: 2013Q1

REPORT INFORMATION
  Report Type: Spontaneous
  Country: US (occurrence: None)
  Receive Date: 20130314
  Receipt Date: 20130314
  Transmission Date: 20140127
  Serious: Yes (Life-Threatening)
  Sender: FDA-Public Use
  Company Number: None

PATIENT
  Age: 65 Year
  Sex: Female
  Weight: 120 kg

DRUGS (2)
  1. HYDROMORPHONE [Suspect]
     Dosage: 1 MG  Q3H PRN  IV BOLUS?1-2 DOSES
     Route: 040
  2. ALBUTEROL/IPRATROPIUM [Concomitant]

REACTIONS (2)
  - Respiratory depression [None]
  - Hypoxia [None]
